FAERS Safety Report 19255504 (Version 2)
Quarter: 2021Q2

REPORT INFORMATION
  Report Type: Spontaneous
  Country: IT (occurrence: IT)
  Receive Date: 20210513
  Receipt Date: 20210528
  Transmission Date: 20210717
  Serious: Yes (Hospitalization, Other)
  Sender: FDA-Public Use
  Company Number: IT-JNJFOC-20210508592

PATIENT
  Age: 51 Year
  Sex: Female

DRUGS (11)
  1. DELORAZEPAM [Concomitant]
     Active Substance: DELORAZEPAM
     Indication: INSOMNIA
     Dosage: ABOUT 50 DROPS
     Dates: start: 20210415, end: 20210429
  2. TRITTICO [Concomitant]
     Active Substance: TRAZODONE HYDROCHLORIDE
     Indication: AGITATION
  3. BIPERIDENE [Concomitant]
     Active Substance: BIPERIDEN
     Indication: EXTRAPYRAMIDAL DISORDER
     Route: 048
     Dates: start: 20210415
  4. XEPLION [Suspect]
     Active Substance: PALIPERIDONE PALMITATE
  5. TALOFEN [Concomitant]
     Active Substance: PROMAZINE HYDROCHLORIDE
     Indication: INSOMNIA
     Dosage: ABOUT 50 DROPS
     Dates: start: 20210416, end: 20210429
  6. TALOFEN [Concomitant]
     Active Substance: PROMAZINE HYDROCHLORIDE
     Indication: AGITATION
  7. TRITTICO [Concomitant]
     Active Substance: TRAZODONE HYDROCHLORIDE
     Indication: INSOMNIA
     Dosage: 60 DROPS (ABOUT 120/130 MG)
     Dates: start: 20210426, end: 20210429
  8. XEPLION [Suspect]
     Active Substance: PALIPERIDONE PALMITATE
     Indication: PSYCHOTIC DISORDER
     Route: 030
     Dates: start: 20210428
  9. XEPLION [Suspect]
     Active Substance: PALIPERIDONE PALMITATE
  10. QUINAPRIL. [Concomitant]
     Active Substance: QUINAPRIL
     Indication: HYPERTENSION
     Route: 048
     Dates: start: 20210415
  11. DELORAZEPAM [Concomitant]
     Active Substance: DELORAZEPAM
     Indication: AGITATION

REACTIONS (3)
  - Oxygen saturation decreased [Recovered/Resolved]
  - Sedation [Recovered/Resolved]
  - Hypokinesia [Recovered/Resolved]

NARRATIVE: CASE EVENT DATE: 20210428
